FAERS Safety Report 4508709-6 (Version None)
Quarter: 2004Q4

REPORT INFORMATION
  Report Type: 
  Country: None (occurrence: None)
  Receive Date: 20041118
  Receipt Date: 20041104
  Transmission Date: 20050328
  Serious: Yes (Life-Threatening, Hospitalization)
  Sender: FDA-Public Use
  Company Number: FABR-10284

PATIENT
  Age: 29 Year
  Sex: Male
  Weight: 66.9 kg

DRUGS (4)
  1. FABRAZYME [Suspect]
     Indication: FABRY'S DISEASE
     Dosage: 64 MG Q2WKS IV
     Route: 042
     Dates: start: 20001124, end: 20030910
  2. FABRAZYME [Suspect]
     Indication: FABRY'S DISEASE
     Dosage: 15 MG Q2WKS IV
     Route: 042
     Dates: start: 20040302
  3. HYDROXYZINE [Concomitant]
  4. CARBAMAZEPINE [Concomitant]

REACTIONS (10)
  - ABDOMINAL PAIN UPPER [None]
  - BLOOD IMMUNOGLOBULIN G INCREASED [None]
  - DYSPNOEA [None]
  - HYPERSENSITIVITY [None]
  - NAUSEA [None]
  - OXYGEN SATURATION DECREASED [None]
  - PHARYNGEAL OEDEMA [None]
  - PRURITUS [None]
  - RASH GENERALISED [None]
  - URTICARIA [None]
